FAERS Safety Report 22130846 (Version 1)
Quarter: 2023Q1

REPORT INFORMATION
  Report Type: Spontaneous
  Country: US (occurrence: None)
  Receive Date: 20230322
  Receipt Date: 20230322
  Transmission Date: 20230418
  Serious: Yes (Other)
  Sender: FDA-Public Use
  Company Number: None

PATIENT
  Age: 64 Year
  Sex: Male
  Weight: 104.85 kg

DRUGS (9)
  1. DUPIXENT [Suspect]
     Active Substance: DUPILUMAB
     Indication: Eczema
     Dosage: OTHER QUANTITY : 2 INJECTION(S);?OTHER FREQUENCY : BIWEEKLY;?OTHER ROUTE : INJECTION;?
     Route: 050
     Dates: start: 20220302, end: 20220626
  2. LOSARTAN [Concomitant]
     Active Substance: LOSARTAN
  3. PANTOPRAZOLE [Concomitant]
     Active Substance: PANTOPRAZOLE
  4. VITAMIN C [Concomitant]
     Active Substance: ASCORBIC ACID
  5. VITAMIN D [Concomitant]
     Active Substance: VITAMIN D NOS
  6. VITAMIN B [Concomitant]
     Active Substance: VITAMIN B
  7. KIRKLAND SIGNATURE ALLER FEX [Concomitant]
     Active Substance: FEXOFENADINE HYDROCHLORIDE
  8. GLUCOSAMINE [Concomitant]
     Active Substance: GLUCOSAMINE
  9. GINKGO [Concomitant]
     Active Substance: GINKGO

REACTIONS (6)
  - Tinnitus [None]
  - Lip swelling [None]
  - Urticaria [None]
  - Rash [None]
  - Therapy cessation [None]
  - Inner ear inflammation [None]

NARRATIVE: CASE EVENT DATE: 20220611
